FAERS Safety Report 15334860 (Version 1)
Quarter: 2018Q3

REPORT INFORMATION
  Report Type: Spontaneous
  Country: FR (occurrence: FR)
  Receive Date: 20180830
  Receipt Date: 20180830
  Transmission Date: 20181010
  Serious: Yes (Hospitalization)
  Sender: FDA-Public Use
  Company Number: PHHY2018FR085836

PATIENT
  Age: 12 Year
  Sex: Female
  Weight: 101 kg

DRUGS (1)
  1. FLUOXETINE HYDROCHLORIDE. [Suspect]
     Active Substance: FLUOXETINE HYDROCHLORIDE
     Indication: DEPRESSION
     Dosage: 20 MG, QD
     Route: 048
     Dates: start: 20180611, end: 20180703

REACTIONS (3)
  - Memory impairment [Recovering/Resolving]
  - Seizure [Recovered/Resolved]
  - Personality change [Recovering/Resolving]

NARRATIVE: CASE EVENT DATE: 201806
